FAERS Safety Report 4366144-8 (Version None)
Quarter: 2004Q2

REPORT INFORMATION
  Report Type: 
  Country: None (occurrence: None)
  Receive Date: 20040526
  Receipt Date: 20040526
  Transmission Date: 20050107
  Serious: Yes (Hospitalization)
  Sender: FDA-Public Use
  Company Number: None

PATIENT
  Age: 81 Year
  Sex: Male
  Weight: 94.8018 kg

DRUGS (14)
  1. ZYVOX [Suspect]
     Indication: OSTEOMYELITIS
     Dosage: 600 MG BID ORAL
     Route: 048
     Dates: start: 20031120, end: 20031218
  2. ZYVOX [Suspect]
     Indication: STAPHYLOCOCCAL INFECTION
     Dosage: 600 MG BID ORAL
     Route: 048
     Dates: start: 20031120, end: 20031218
  3. AMITRIPTYLINE HCL [Concomitant]
  4. INSULIN [Concomitant]
  5. BETAXOLOL EYE DROPS [Concomitant]
  6. ASPIRIN [Concomitant]
  7. LEVOTHYROXINE SODIUM [Concomitant]
  8. LISINOPRIL [Concomitant]
  9. METHOCARBAMOL [Concomitant]
  10. METRONIDAZOLE [Concomitant]
  11. MORPHINE [Concomitant]
  12. PAROXETINE HCL [Concomitant]
  13. PIOGLITAZONE HCL [Concomitant]
  14. SIMVASTATIN [Concomitant]

REACTIONS (2)
  - ANAEMIA [None]
  - MYOCARDIAL INFARCTION [None]
